FAERS Safety Report 10217002 (Version 2)
Quarter: 2014Q2

REPORT INFORMATION
  Report Type: Other
  Country: CA (occurrence: CA)
  Receive Date: 20140604
  Receipt Date: 20140604
  Transmission Date: 20141212
  Serious: Yes (Hospitalization, Other)
  Sender: FDA-Public Use
  Company Number: CA-GSKPPD-2014GSK007897

PATIENT
  Sex: Male

DRUGS (5)
  1. AVANDIA [Suspect]
     Indication: DIABETES MELLITUS
     Dosage: AVANDIA WAS NOT LISTED AMONG THE PATIENT^S DISCHARGE RECORDS.
     Route: 048
  2. ALTACE [Concomitant]
  3. ZARAXOLYN [Concomitant]
  4. LASIX [Concomitant]
  5. K-DUR [Concomitant]

REACTIONS (3)
  - Ischaemic cardiomyopathy [Recovered/Resolved]
  - Hypertensive cardiomyopathy [Recovered/Resolved]
  - Cardiac failure [Recovered/Resolved]
